FAERS Safety Report 5109599-3 (Version None)
Quarter: 2006Q3

REPORT INFORMATION
  Report Type: 
  Country: None (occurrence: None)
  Receive Date: 20060731
  Receipt Date: 20060514
  Transmission Date: 20061208
  Serious: No
  Sender: FDA-Public Use
  Company Number: 2006PV013734

PATIENT
  Age: 70 Year
  Sex: Female
  Weight: 71.2147 kg

DRUGS (4)
  1. BYETTA [Suspect]
     Indication: DIABETES MELLITUS NON-INSULIN-DEPENDENT
     Dosage: 5 MCG;BID;SC
     Route: 058
     Dates: start: 20060101
  2. METFORMIN HCL [Concomitant]
  3. AMARYL [Concomitant]
  4. ACTOS [Concomitant]

REACTIONS (5)
  - ASTHENIA [None]
  - DYSPEPSIA [None]
  - SINUS HEADACHE [None]
  - SINUSITIS [None]
  - WEIGHT DECREASED [None]
